FAERS Safety Report 5002383-0 (Version None)
Quarter: 2006Q2

REPORT INFORMATION
  Report Type: 
  Country: None (occurrence: None)
  Receive Date: 20060512
  Receipt Date: 20060428
  Transmission Date: 20061013
  Serious: Yes (Hospitalization, Other)
  Sender: FDA-Public Use
  Company Number: 2006RR-02161

PATIENT
  Age: 95 Year
  Sex: Female

DRUGS (10)
  1. HISTAC 150 MG (RANITIDINE) TABLET, 150 MG [Suspect]
     Indication: GASTROINTESTINAL DISORDER
     Dosage: 150 MG, BID, ORAL
     Route: 048
     Dates: start: 19980124, end: 20060407
  2. ALITIZIDE-SPIRONOLACTONE (ALTIZIDE, SPIRONOLACTONE) [Suspect]
     Indication: POLYURIA
     Dosage: 25 MG, QD, ORAL
     Route: 048
     Dates: start: 19970407, end: 20060407
  3. PAROXETINE [Suspect]
     Indication: DEPRESSION
     Dosage: 30 MG, QD, ORAL
     Route: 048
     Dates: start: 19970419
  4. TEMAZEPAM [Concomitant]
  5. ACETAMINOPHEN [Concomitant]
  6. LACTULOSE [Concomitant]
  7. METOCLOPRAMIDE TABLETS 10MG (METOCLOPRAMIDE HYDROCHLORIDE) TABLET [Concomitant]
  8. PILOCARPINE [Concomitant]
  9. XALACOM [Concomitant]
  10. AZOPT [Concomitant]

REACTIONS (4)
  - CONTUSION [None]
  - DEPRESSION [None]
  - GASTROINTESTINAL DISORDER [None]
  - PLATELET COUNT DECREASED [None]
